FAERS Safety Report 5333427-4 (Version None)
Quarter: 2007Q2

REPORT INFORMATION
  Report Type: 
  Country: None (occurrence: None)
  Receive Date: 20070522
  Receipt Date: 20070522
  Transmission Date: 20071010
  Serious: Yes (Other)
  Sender: FDA-Public Use
  Company Number: None

PATIENT
  Age: 39 Year
  Sex: Female
  Weight: 34.3 kg

DRUGS (2)
  1. AVELOX [Suspect]
     Indication: BRONCHITIS
     Dosage: 400MG QD INJ
     Dates: start: 20070517, end: 20070519
  2. AVELOX [Suspect]
     Indication: SPINAL MUSCULAR ATROPHY
     Dosage: 400MG QD INJ
     Dates: start: 20070517, end: 20070519

REACTIONS (3)
  - ADVERSE DRUG REACTION [None]
  - DYSGEUSIA [None]
  - HEMIPARESIS [None]
